FAERS Safety Report 25676750 (Version 2)
Quarter: 2025Q4

REPORT INFORMATION
  Report Type: Spontaneous
  Country: CA (occurrence: CA)
  Receive Date: 20250813
  Receipt Date: 20251009
  Transmission Date: 20260118
  Serious: Yes (Death, Other)
  Sender: PFIZER
  Company Number: CA-PFIZER INC-202500150393

PATIENT
  Age: 58 Year
  Sex: Female

DRUGS (3)
  1. RUXIENCE [Suspect]
     Active Substance: RITUXIMAB-PVVR
     Indication: Neuromyelitis optica spectrum disorder
     Dosage: 1000 MG, DAY 1 AND DAY 15
     Route: 042
     Dates: start: 2024, end: 20240226
  2. RUXIENCE [Suspect]
     Active Substance: RITUXIMAB-PVVR
     Dosage: 1000 MG, DAY 1 DAY 15
     Route: 042
     Dates: start: 20240903, end: 20240917
  3. RUXIENCE [Suspect]
     Active Substance: RITUXIMAB-PVVR
     Dosage: 1000 MG, SINGLE DOSE
     Route: 042
     Dates: start: 20250226, end: 20250226

REACTIONS (4)
  - Neoplasm malignant [Fatal]
  - Mouth swelling [Unknown]
  - Hypotension [Unknown]
  - Infusion related reaction [Unknown]
